FAERS Safety Report 14019295 (Version 1)
Quarter: 2017Q3

REPORT INFORMATION
  Report Type: Spontaneous
  Country: US (occurrence: US)
  Receive Date: 20170928
  Receipt Date: 20170928
  Transmission Date: 20171128
  Serious: No
  Sender: FDA-Public Use
  Company Number: US-BION-006306

PATIENT
  Sex: Female

DRUGS (1)
  1. LOPERAMIDE 2 MG SOFTGELS 6CT (BIONPHARMA) [Suspect]
     Active Substance: LOPERAMIDE
     Indication: DIARRHOEA
     Dosage: STRENGTH: 2 MG,?RECEIVED 2 SOFTGELS OCCASIONALLY
     Route: 048

REACTIONS (3)
  - Intentional product misuse [Not Recovered/Not Resolved]
  - Throat irritation [Recovered/Resolved]
  - Gastrooesophageal reflux disease [None]
